FAERS Safety Report 13386124 (Version 1)
Quarter: 2017Q1

REPORT INFORMATION
  Report Type: Report from Study
  Country: US (occurrence: US)
  Receive Date: 20170330
  Receipt Date: 20170330
  Transmission Date: 20170429
  Serious: Yes (Hospitalization, Other)
  Sender: FDA-Public Use
  Company Number: US-GILEAD-2017-0263807

PATIENT
  Age: 17 Year
  Sex: Female

DRUGS (22)
  1. FLUTICASONE. [Concomitant]
     Active Substance: FLUTICASONE
  2. LANSOPRAZOLE. [Concomitant]
     Active Substance: LANSOPRAZOLE
  3. RANITIDINE. [Concomitant]
     Active Substance: RANITIDINE
  4. PROAIR HFA [Concomitant]
     Active Substance: ALBUTEROL SULFATE
  5. POLYETHYLENE GLYCOL [Concomitant]
     Active Substance: POLYETHYLENE GLYCOLS
  6. VITAMIN D3 [Concomitant]
     Active Substance: CHOLECALCIFEROL
  7. SYMBICORT [Concomitant]
     Active Substance: BUDESONIDE\FORMOTEROL FUMARATE DIHYDRATE
  8. SCANDISHAKE MIX [Concomitant]
     Active Substance: DIETARY SUPPLEMENT
  9. BOOST [Concomitant]
     Active Substance: DIETARY SUPPLEMENT
  10. COMPLETE FORM [Concomitant]
  11. CREON [Concomitant]
     Active Substance: PANCRELIPASE AMYLASE\PANCRELIPASE LIPASE\PANCRELIPASE PROTEASE
  12. AQUADEKS                           /07679501/ [Concomitant]
     Active Substance: MINERALS\VITAMINS
  13. BETHKIS [Concomitant]
     Active Substance: TOBRAMYCIN
  14. LANTUS [Concomitant]
     Active Substance: INSULIN GLARGINE
  15. HUMALOG [Concomitant]
     Active Substance: INSULIN LISPRO
  16. AMOXICILLIN. [Concomitant]
     Active Substance: AMOXICILLIN
  17. AZTREONAM LYSINE [Suspect]
     Active Substance: AZTREONAM LYSINE
     Indication: CYSTIC FIBROSIS
     Dosage: 75 MG, UNK
     Route: 055
     Dates: start: 20150316
  18. CETIRIZINE [Concomitant]
     Active Substance: CETIRIZINE HYDROCHLORIDE
  19. METOCLOPRAMIDE. [Concomitant]
     Active Substance: METOCLOPRAMIDE
  20. PULMOZYME [Concomitant]
     Active Substance: DORNASE ALFA
  21. CIPROFLOXACIN. [Concomitant]
     Active Substance: CIPROFLOXACIN
  22. REPLESTA [Concomitant]

REACTIONS (6)
  - Cystic fibrosis [Unknown]
  - Gastrointestinal obstruction [Unknown]
  - Bacterial test positive [Unknown]
  - Infectious mononucleosis [Unknown]
  - Pseudomonas test positive [Unknown]
  - Nephrolithiasis [Unknown]
